FAERS Safety Report 8446852-X (Version None)
Quarter: 2012Q2

REPORT INFORMATION
  Report Type: 
  Country: None (occurrence: None)
  Receive Date: 20120612
  Receipt Date: 20120612
  Transmission Date: 20120825
  Serious: Yes (Life-Threatening, Hospitalization, Other)
  Sender: FDA-Public Use
  Company Number: None

PATIENT
  Age: 62 Year
  Sex: Female
  Weight: 86.1834 kg

DRUGS (1)
  1. BYDUREON [Suspect]
     Dates: start: 20120501, end: 20120608

REACTIONS (7)
  - UNRESPONSIVE TO STIMULI [None]
  - DISORIENTATION [None]
  - FEELING ABNORMAL [None]
  - BLOOD GLUCOSE FLUCTUATION [None]
  - GLYCOSYLATED HAEMOGLOBIN INCREASED [None]
  - BLOOD GLUCOSE DECREASED [None]
  - DECREASED APPETITE [None]
